FAERS Safety Report 9486181 (Version 1)
Quarter: 2013Q3

REPORT INFORMATION
  Report Type: Spontaneous
  Country: US (occurrence: US)
  Receive Date: 20130829
  Receipt Date: 20130829
  Transmission Date: 20140515
  Serious: No
  Sender: FDA-Public Use
  Company Number: US-GLAXOSMITHKLINE-A1026268A

PATIENT
  Sex: Female

DRUGS (1)
  1. MALARONE [Suspect]

REACTIONS (3)
  - Nausea [Unknown]
  - Headache [Unknown]
  - Treatment noncompliance [Unknown]
